FAERS Safety Report 11579737 (Version 1)
Quarter: 2015Q3

REPORT INFORMATION
  Report Type: Spontaneous
  Country: US (occurrence: US)
  Receive Date: 20150916
  Receipt Date: 20150916
  Transmission Date: 20151125
  Serious: No
  Sender: FDA-Public Use
  Company Number: US-ELI_LILLY_AND_COMPANY-US200805004565

PATIENT
  Age: 86 Year
  Sex: Female

DRUGS (3)
  1. PLAQUINOL [Concomitant]
     Active Substance: HYDROXYCHLOROQUINE SULFATE
  2. ASPIRIN. [Concomitant]
     Active Substance: ASPIRIN
  3. FORTEO [Suspect]
     Active Substance: TERIPARATIDE
     Dates: start: 200712

REACTIONS (1)
  - Muscular weakness [Not Recovered/Not Resolved]

NARRATIVE: CASE EVENT DATE: 200903
